FAERS Safety Report 10378202 (Version 1)
Quarter: 2014Q1

REPORT INFORMATION
  Report Type: Spontaneous
  Country: US (occurrence: None)
  Receive Date: 20140306
  Receipt Date: 20140306
  Transmission Date: 20141002
  Serious: Yes (Disabling)
  Sender: FDA-Public Use
  Company Number: 163-21880-13013457

PATIENT
  Age: 52 Year
  Sex: Male

DRUGS (6)
  1. REVLIMID (LENALIDOMIDE) (25 MILLIGRAM, CAPSULES) [Suspect]
     Indication: PLASMA CELL MYELOMA
     Dosage: 25MG, 14 IN 21 D, PO
     Route: 048
     Dates: start: 20130114, end: 20130121
  2. DECARDRON (DEXAMETHASONE) [Concomitant]
  3. PROTONIX [Concomitant]
  4. VELCADE (BORTEZOMIB) [Concomitant]
  5. ACYCLOVIR (ACICLOVIR) [Concomitant]
  6. BACTRIM [Concomitant]

REACTIONS (3)
  - Generalised erythema [None]
  - Swelling [None]
  - Headache [None]
